FAERS Safety Report 17393771 (Version 7)
Quarter: 2020Q2

REPORT INFORMATION
  Report Type: Spontaneous
  Country: GB (occurrence: GB)
  Receive Date: 20200209
  Receipt Date: 20200605
  Transmission Date: 20200713
  Serious: Yes (Death, Hospitalization, Other)
  Sender: FDA-Public Use
  Company Number: GB-SA-2020SA028771

PATIENT

DRUGS (50)
  1. LANSOPRAZOLE. [Concomitant]
     Active Substance: LANSOPRAZOLE
     Indication: GASTROINTESTINAL DISORDER
     Dosage: 30 MG, QD
     Route: 048
     Dates: start: 20190816
  2. DOMPERIDONE [Concomitant]
     Active Substance: DOMPERIDONE
     Indication: NAUSEA
     Dosage: 10 MG, TID
     Route: 048
     Dates: start: 2019
  3. SANDO K [POTASSIUM CHLORIDE] [Concomitant]
     Dosage: 1 DF, PRN
     Route: 048
     Dates: start: 20191030, end: 20191030
  4. FRUSEMIDE [FUROSEMIDE] [Concomitant]
     Active Substance: FUROSEMIDE
     Indication: OEDEMA
     Dosage: 40 MG, QD
     Route: 048
     Dates: start: 20191026, end: 20191026
  5. LEVOMEPROMAZINE [Concomitant]
     Active Substance: LEVOMEPROMAZINE
     Indication: NAUSEA
     Dosage: 6.25 MG, QD
     Route: 048
     Dates: start: 20190823, end: 20190829
  6. PREDNISOLONE. [Concomitant]
     Active Substance: PREDNISOLONE
     Dosage: 80 MG, QD
     Route: 048
     Dates: start: 20190823, end: 20190901
  7. PREDNISOLONE. [Concomitant]
     Active Substance: PREDNISOLONE
     Dosage: 80 MG, QD (WEANED BY 10MG EVERY DAY)
     Route: 048
  8. THYMOGLOBULINE [Suspect]
     Active Substance: LAPINE T-LYMPHOCYTE IMMUNE GLOBULIN
     Dosage: 190 MG, QD
     Route: 042
     Dates: start: 20190820, end: 20190823
  9. BECLOMETHASONE [BECLOMETASONE] [Concomitant]
     Active Substance: BECLOMETHASONE
     Indication: ASTHMA
     Dosage: 100 UG, PRN
     Route: 055
  10. SANDO K [POTASSIUM CHLORIDE] [Concomitant]
     Indication: ELECTROLYTE SUBSTITUTION THERAPY
     Dosage: 600 MG, QD
     Route: 048
     Dates: start: 20190821, end: 20190830
  11. CYCLIZINE [Concomitant]
     Active Substance: CYCLIZINE
     Indication: NAUSEA
     Dosage: 50 MG, PRN
     Route: 042
     Dates: start: 20190821, end: 20190825
  12. CO-AMOXICLAVE [Concomitant]
     Active Substance: AMOXICILLIN\CLAVULANATE POTASSIUM
     Indication: FEBRILE NEUTROPENIA
     Dosage: 1.2 G, TID
     Route: 042
     Dates: start: 20190820, end: 20190823
  13. ENOXAPARIN [Concomitant]
     Active Substance: ENOXAPARIN
     Indication: PROPHYLAXIS
     Dosage: 40 MG, BID
     Route: 058
     Dates: start: 20191030, end: 20191104
  14. ACICLOVIR [Concomitant]
     Active Substance: ACYCLOVIR
     Indication: ANTIVIRAL PROPHYLAXIS
     Dosage: 400 MG, BID
     Route: 048
     Dates: start: 20190816
  15. VITAMIN B12 [Concomitant]
     Active Substance: CYANOCOBALAMIN
     Indication: SUPPLEMENTATION THERAPY
     Dosage: 1.0 UNK, Q12W
     Route: 030
  16. FLUCONAZOLE. [Concomitant]
     Active Substance: FLUCONAZOLE
     Indication: PROPHYLAXIS
     Dosage: 400 MG, QD
     Route: 048
     Dates: start: 20190822, end: 20190901
  17. CYCLIZINE [Concomitant]
     Active Substance: CYCLIZINE
     Dosage: 50 MG, PRN
  18. PLATELETS [Concomitant]
     Active Substance: HUMAN PLATELET, ALLOGENIC
     Indication: PLATELET COUNT DECREASED
     Dosage: 1 DF (STAT)
     Route: 042
     Dates: start: 20190830, end: 20190830
  19. DOMPERIDONE [Concomitant]
     Active Substance: DOMPERIDONE
     Dosage: 10 MG, TID
     Route: 048
     Dates: start: 20190923
  20. ONDANSETRON [Concomitant]
     Active Substance: ONDANSETRON
     Dosage: 8 MG, BID
     Route: 042
     Dates: start: 20191029, end: 20191030
  21. AMLODIPINE [Concomitant]
     Active Substance: AMLODIPINE BESYLATE
     Indication: HYPERTENSION
     Dosage: 10 MG, QD
     Route: 048
     Dates: start: 20190817
  22. MAGNESIUM OXIDE. [Concomitant]
     Active Substance: MAGNESIUM OXIDE
     Indication: ELECTROLYTE SUBSTITUTION THERAPY
     Dosage: 1 DF, QD
     Route: 048
     Dates: start: 20190821, end: 20190829
  23. CLARITHROMYCIN. [Concomitant]
     Active Substance: CLARITHROMYCIN
     Indication: ANTIBIOTIC LEVEL
     Dosage: 500 MG, BID
     Route: 048
     Dates: start: 20191023, end: 20191030
  24. ORAMORPH SR SUSTAINED RELEASE [Concomitant]
     Active Substance: MORPHINE SULFATE
     Indication: ANALGESIC THERAPY
     Dosage: 5 MG, PRN
     Route: 048
     Dates: start: 20191030, end: 20191031
  25. THYMOGLOBULINE [Suspect]
     Active Substance: LAPINE T-LYMPHOCYTE IMMUNE GLOBULIN
     Indication: PROPHYLAXIS AGAINST TRANSPLANT REJECTION
     Dosage: 2.5 MG, 1X
     Route: 042
     Dates: start: 20190819, end: 20190819
  26. SANDO K [POTASSIUM CHLORIDE] [Concomitant]
     Dosage: 1200 MG, QD
     Route: 048
     Dates: start: 20190827, end: 20190902
  27. CIPROFLOXACIN. [Concomitant]
     Active Substance: CIPROFLOXACIN
     Indication: PROPHYLAXIS
     Dosage: 750 MG, BID
     Route: 048
     Dates: start: 20190830, end: 20190901
  28. ADCAL D3 [Concomitant]
     Active Substance: CALCIUM CARBONATE\CHOLECALCIFEROL
     Indication: ELECTROLYTE SUBSTITUTION THERAPY
     Dosage: 1 DF, BID
     Route: 048
     Dates: start: 20190821, end: 20190829
  29. FRUSEMIDE [FUROSEMIDE] [Concomitant]
     Active Substance: FUROSEMIDE
     Indication: FLUID OVERLOAD
     Dosage: 40 MG, QD
     Route: 048
     Dates: start: 20190823, end: 20190828
  30. LEVOMEPROMAZINE [Concomitant]
     Active Substance: LEVOMEPROMAZINE
     Indication: VOMITING
     Dosage: 6.25 MG, PRN
     Route: 058
     Dates: start: 20190821, end: 20190828
  31. ALTASE F [Concomitant]
     Active Substance: HERBALS\SODIUM BICARBONATE\YEAST
     Dosage: 2 MG, PRN
     Route: 042
     Dates: start: 20190824, end: 20190824
  32. HYDROCORTISONE. [Concomitant]
     Active Substance: HYDROCORTISONE
     Indication: HYPERSENSITIVITY
     Dosage: 100 MG, BID
     Route: 042
     Dates: start: 20190820, end: 20190820
  33. CHLORPHENAMINE [Concomitant]
     Active Substance: CHLORPHENIRAMINE MALEATE
     Indication: RASH
     Dosage: 10 MG, PRN
     Route: 042
     Dates: start: 20190820, end: 20190822
  34. INHIXA [Concomitant]
     Active Substance: ENOXAPARIN SODIUM
     Indication: THROMBOSIS PROPHYLAXIS
     Dosage: 40 MG, QD
     Route: 058
     Dates: start: 20190816, end: 20190901
  35. RED BLOOD CELLS [Concomitant]
     Active Substance: HUMAN RED BLOOD CELL
     Indication: HAEMOGLOBIN DECREASED
     Dosage: 1 DF (FREQUENCY STAT)
     Route: 042
     Dates: start: 20190831, end: 20190831
  36. RAMIPRIL. [Concomitant]
     Active Substance: RAMIPRIL
     Indication: HYPERTENSION
     Dosage: 2.5 MG, QD
     Route: 048
     Dates: start: 20190825
  37. SANDO K [POTASSIUM CHLORIDE] [Concomitant]
     Dosage: 1200 MG, TID
     Route: 048
     Dates: start: 20190824, end: 20190830
  38. AMLODIPINE [Concomitant]
     Active Substance: AMLODIPINE BESYLATE
     Indication: BLOOD PRESSURE ABNORMAL
     Dosage: 10 MG (STAT)
     Route: 048
     Dates: start: 20191023, end: 20191023
  39. COTRIMOXAZOLE [Concomitant]
     Active Substance: SULFAMETHOXAZOLE\TRIMETHOPRIM
     Indication: PROPHYLAXIS
     Dosage: 960 MG, TID
     Route: 048
     Dates: start: 20190904, end: 20190923
  40. COTRIMOXAZOLE [Concomitant]
     Active Substance: SULFAMETHOXAZOLE\TRIMETHOPRIM
     Dosage: 2900 MG, TID
     Route: 042
     Dates: start: 20191024, end: 20191104
  41. ONDANSETRON [Concomitant]
     Active Substance: ONDANSETRON
     Indication: NAUSEA
     Dosage: 8 MG, BID
     Route: 048
     Dates: start: 20190816
  42. NORETHISTERONE [Concomitant]
     Active Substance: NORETHINDRONE
     Indication: VAGINAL HAEMORRHAGE
     Dosage: 5 MG, TID
     Route: 048
     Dates: start: 20190830, end: 20191024
  43. SALBUTAMOL [Concomitant]
     Active Substance: ALBUTEROL
     Indication: ASTHMA
     Dosage: 100 MG, PRN
     Route: 055
  44. PIPERACILLIN AND TAZOBACTAM [Concomitant]
     Active Substance: PIPERACILLIN SODIUM\TAZOBACTAM SODIUM
     Indication: FEBRILE NEUTROPENIA
     Dosage: 4.5 MG, TID
     Route: 042
     Dates: start: 20190823, end: 20190829
  45. CO-AMOXICLAVE [Concomitant]
     Active Substance: AMOXICILLIN\CLAVULANATE POTASSIUM
     Indication: ANTIBIOTIC LEVEL
     Dosage: 1.2 G, TID
     Route: 042
     Dates: start: 20191023, end: 20191104
  46. INHIXA [Concomitant]
     Active Substance: ENOXAPARIN SODIUM
     Dosage: 40 MG, QD
     Route: 058
     Dates: start: 20191024, end: 20191029
  47. RED BLOOD CELLS [Concomitant]
     Active Substance: HUMAN RED BLOOD CELL
     Dosage: 1 DF (STAT)
     Route: 042
     Dates: start: 20191026, end: 20191026
  48. NORMAL SALINE [Concomitant]
     Active Substance: SODIUM CHLORIDE
     Indication: FLUID BALANCE ASSESSMENT
     Dosage: 2250 ML, CONT
     Route: 042
     Dates: start: 20190822, end: 20190828
  49. METOCLOPRAMIDE. [Concomitant]
     Active Substance: METOCLOPRAMIDE
     Indication: NAUSEA
     Dosage: 10 MG, PRN (ORAL/IV)
     Dates: start: 20191031, end: 20191031
  50. GLUTIDE [GLICLAZIDE] [Concomitant]
     Indication: HYPERGLYCAEMIA
     Dosage: 40 MG, QD
     Route: 048
     Dates: start: 20191106, end: 20191106

REACTIONS (12)
  - Pleural effusion [Fatal]
  - Hypertension [Unknown]
  - Dyspnoea [Fatal]
  - Hallucination [Recovering/Resolving]
  - Renal failure [Fatal]
  - Pulmonary veno-occlusive disease [Fatal]
  - Respiratory failure [Fatal]
  - Pneumonia [Recovered/Resolved]
  - Vomiting [Unknown]
  - Dyspnoea [Recovered/Resolved]
  - Epstein-Barr virus infection reactivation [Unknown]
  - Pulmonary hypertension [Fatal]

NARRATIVE: CASE EVENT DATE: 20191023
